FAERS Safety Report 4755623-7 (Version None)
Quarter: 2005Q3

REPORT INFORMATION
  Report Type: 
  Country: None (occurrence: None)
  Receive Date: 20050830
  Receipt Date: 20050606
  Transmission Date: 20060218
  Serious: No
  Sender: FDA-Public Use
  Company Number: US-BRISTOL-MYERS SQUIBB COMPANY-12993960

PATIENT
  Age: 10 Year
  Sex: Male

DRUGS (2)
  1. ABILIFY [Suspect]
     Indication: MAJOR DEPRESSION
  2. LAMICTAL [Concomitant]

REACTIONS (1)
  - WHITE BLOOD CELL COUNT DECREASED [None]
